FAERS Safety Report 7017601-7 (Version None)
Quarter: 2010Q3

REPORT INFORMATION
  Report Type: 
  Country: None (occurrence: None)
  Receive Date: 20100928
  Receipt Date: 20100922
  Transmission Date: 20110219
  Serious: Yes (Other)
  Sender: FDA-Public Use
  Company Number: JP-GENZYME-THYM-1001852

PATIENT
  Age: 77 Year
  Sex: Female

DRUGS (1)
  1. THYMOGLOBULIN [Suspect]
     Indication: APLASTIC ANAEMIA
     Dosage: 3.3 MG/KG, QD
     Route: 042
     Dates: start: 20100906, end: 20100910

REACTIONS (1)
  - CARDIAC FAILURE [None]
